FAERS Safety Report 23411221 (Version 1)
Quarter: 2024Q1

REPORT INFORMATION
  Report Type: Spontaneous
  Country: FR (occurrence: FR)
  Receive Date: 20240117
  Receipt Date: 20240117
  Transmission Date: 20240410
  Serious: Yes (Other)
  Sender: FDA-Public Use
  Company Number: None

PATIENT
  Age: 25 Year
  Sex: Male

DRUGS (5)
  1. AZITHROMYCIN [Suspect]
     Active Substance: AZITHROMYCIN
     Indication: Prophylaxis
     Dosage: UNK
     Route: 048
     Dates: start: 20231122, end: 20240102
  2. LAMPRENE [Suspect]
     Active Substance: CLOFAZIMINE
     Indication: Mycobacterial infection
     Dosage: 100 MG, DAILY
     Route: 048
     Dates: start: 20231122, end: 20240102
  3. SIVEXTRO [Suspect]
     Active Substance: TEDIZOLID PHOSPHATE
     Indication: Mycobacterial infection
     Dosage: 1 DF, 1X/DAY
     Route: 048
     Dates: start: 20231122, end: 20240102
  4. AMIKACIN [Suspect]
     Active Substance: AMIKACIN
     Indication: Mycobacterial infection
     Dosage: 850 MG, DAILY
     Route: 042
     Dates: start: 20231122, end: 20240102
  5. CILASTATIN SODIUM\IMIPENEM [Suspect]
     Active Substance: CILASTATIN SODIUM\IMIPENEM
     Indication: Mycobacterial infection
     Dosage: 2 DF, 1X/DAY (MORNING AND EVENING)
     Route: 042
     Dates: start: 20231122, end: 20240102

REACTIONS (2)
  - Toxic skin eruption [Not Recovered/Not Resolved]
  - Off label use [Unknown]

NARRATIVE: CASE EVENT DATE: 20231122
